FAERS Safety Report 23947547 (Version 1)
Quarter: 2024Q2

REPORT INFORMATION
  Report Type: Spontaneous
  Country: US (occurrence: US)
  Receive Date: 20240606
  Receipt Date: 20240606
  Transmission Date: 20240716
  Serious: No
  Sender: FDA-Public Use
  Company Number: US-BRISTOL-MYERS SQUIBB COMPANY-2024-091632

PATIENT
  Age: 67 Year
  Sex: Female

DRUGS (3)
  1. REVLIMID [Suspect]
     Active Substance: LENALIDOMIDE
     Indication: Plasma cell myeloma
     Route: 048
     Dates: start: 202401
  2. LENALIDOMIDE [Concomitant]
     Active Substance: LENALIDOMIDE
  3. NINLARO [Concomitant]
     Active Substance: IXAZOMIB CITRATE
     Dosage: ON DAYS 1, 8, 15 OF A 28-DAY CYCLE.

REACTIONS (3)
  - Lacrimation increased [Unknown]
  - Vision blurred [Unknown]
  - Pigmentation disorder [Unknown]
